FAERS Safety Report 10395594 (Version 2)
Quarter: 2014Q3

REPORT INFORMATION
  Report Type: Report from Study
  Country: DE (occurrence: DE)
  Receive Date: 20140820
  Receipt Date: 20140820
  Transmission Date: 20150326
  Serious: Yes (Life-Threatening, Hospitalization, Disabling)
  Sender: FDA-Public Use
  Company Number: DE-BEH-200509555

PATIENT
  Sex: Female

DRUGS (7)
  1. HEPARIN-FRACTION, SODIUM SALT [Concomitant]
     Active Substance: HEPARIN SODIUM
     Dosage: DAILY DOSE QUANTITY: 40, DAILY DOSE UNIT: IU
     Dates: start: 20051031, end: 20051031
  2. PHENPROCOUMON [Concomitant]
     Active Substance: PHENPROCOUMON
     Indication: THROMBOSIS PROPHYLAXIS
     Route: 048
     Dates: start: 20051030, end: 20051030
  3. HEPARIN-FRACTION, SODIUM SALT [Concomitant]
     Active Substance: HEPARIN SODIUM
     Dosage: DAILY DOSE QUANTITY: 40, DAILY DOSE UNIT: IU
     Dates: start: 20051026, end: 20051027
  4. HEPARIN-FRACTION, SODIUM SALT [Concomitant]
     Active Substance: HEPARIN SODIUM
     Dosage: DAILY DOSE QUANTITY: 20, DAILY DOSE UNIT: IU
     Dates: start: 20051025, end: 20051025
  5. HEPARIN-FRACTION, SODIUM SALT [Concomitant]
     Active Substance: HEPARIN SODIUM
     Dosage: DAILY DOSE QUANTITY: 20, DAILY DOSE UNIT: IU
     Dates: start: 20051028, end: 20051028
  6. BERIPLEX P/N [Suspect]
     Active Substance: COAGULATION FACTOR IX HUMAN\COAGULATION FACTOR VII HUMAN\COAGULATION FACTOR X HUMAN\PROTEIN C\PROTEIN S HUMAN\PROTHROMBIN
     Indication: HAEMORRHAGE
     Dosage: DAILY DOSE QUANTITY: 3000, DAILY DOSE UNIT: IU
     Route: 042
     Dates: start: 20051024, end: 20051024
  7. HEPARIN-FRACTION, SODIUM SALT [Concomitant]
     Active Substance: HEPARIN SODIUM
     Dosage: DAILY DOSE QUANTITY: 80, DAILY DOSE UNIT: IU
     Dates: start: 20051029, end: 20051030

REACTIONS (2)
  - Cerebral artery embolism [Unknown]
  - Peripheral embolism [Recovered/Resolved with Sequelae]

NARRATIVE: CASE EVENT DATE: 20051028
